FAERS Safety Report 11196999 (Version 1)
Quarter: 2015Q2

REPORT INFORMATION
  Report Type: Spontaneous
  Country: US (occurrence: US)
  Receive Date: 20150617
  Receipt Date: 20150617
  Transmission Date: 20150821
  Serious: Yes (Death, Hospitalization)
  Sender: FDA-Public Use
  Company Number: US-JNJFOC-20150504167

PATIENT
  Age: 78 Year
  Sex: Female

DRUGS (1)
  1. IMBRUVICA [Suspect]
     Active Substance: IBRUTINIB
     Indication: NON-HODGKIN^S LYMPHOMA
     Route: 048
     Dates: start: 201410

REACTIONS (10)
  - Acute kidney injury [Unknown]
  - Thrombocytopenia [Unknown]
  - Haematuria [Unknown]
  - Oral herpes [Unknown]
  - Atrial fibrillation [Unknown]
  - Anaemia [Unknown]
  - Encephalopathy [Not Recovered/Not Resolved]
  - Sepsis [Fatal]
  - Cellulitis [Unknown]
  - Urinary tract infection [Not Recovered/Not Resolved]

NARRATIVE: CASE EVENT DATE: 201505
